FAERS Safety Report 9051084 (Version 2)
Quarter: 2013Q1

REPORT INFORMATION
  Report Type: Spontaneous
  Country: BR (occurrence: BR)
  Receive Date: 20130206
  Receipt Date: 20130212
  Transmission Date: 20140127
  Serious: Yes (Death, Other)
  Sender: FDA-Public Use
  Company Number: BR-PFIZER INC-2013044059

PATIENT
  Age: 88 Year
  Sex: Female

DRUGS (4)
  1. LYRICA [Suspect]
     Indication: POLYMYALGIA RHEUMATICA
     Dosage: UNK
  2. ATENOLOL [Concomitant]
     Indication: BLOOD PRESSURE ABNORMAL
     Dosage: UNK
  3. ENALAPRIL [Concomitant]
     Indication: BLOOD PRESSURE ABNORMAL
     Dosage: UNK
  4. HYDROCHLOROTHIAZIDE [Concomitant]
     Indication: DIURETIC THERAPY
     Dosage: UNK

REACTIONS (3)
  - Intestinal infarction [Fatal]
  - Sepsis [Fatal]
  - Diverticulitis [Unknown]
